FAERS Safety Report 14718840 (Version 1)
Quarter: 2018Q2

REPORT INFORMATION
  Report Type: Report from Study
  Country: None (occurrence: US)
  Receive Date: 20180405
  Receipt Date: 20180405
  Transmission Date: 20180711
  Serious: Yes (Hospitalization, Other)
  Sender: FDA-Public Use
  Company Number: US-ABBVIE-18K-163-2302074-00

PATIENT
  Age: 80 Year
  Sex: Female
  Weight: 49.94 kg

DRUGS (2)
  1. VITAMIN D [Concomitant]
     Active Substance: CHOLECALCIFEROL
     Indication: VITAMIN SUPPLEMENTATION
  2. HUMIRA [Suspect]
     Active Substance: ADALIMUMAB
     Indication: PSORIATIC ARTHROPATHY
     Route: 058
     Dates: start: 2013

REACTIONS (7)
  - Umbilical hernia [Recovered/Resolved]
  - Injury associated with device [Unknown]
  - Renal cancer [Recovered/Resolved]
  - Hypogeusia [Not Recovered/Not Resolved]
  - Haematemesis [Recovered/Resolved]
  - Hyposmia [Not Recovered/Not Resolved]
  - Post-traumatic pain [Not Recovered/Not Resolved]

NARRATIVE: CASE EVENT DATE: 2014
